FAERS Safety Report 9645332 (Version 1)
Quarter: 2013Q4

REPORT INFORMATION
  Report Type: Spontaneous
  Country: US (occurrence: US)
  Receive Date: 20131025
  Receipt Date: 20131025
  Transmission Date: 20140711
  Serious: Yes (Hospitalization)
  Sender: FDA-Public Use
  Company Number: US-SA-2013SA106598

PATIENT
  Sex: 0

DRUGS (3)
  1. MULTAQ [Suspect]
     Route: 065
  2. NORVASC [Concomitant]
     Route: 065
     Dates: start: 20130819, end: 20130821
  3. NORVASC [Concomitant]
     Route: 065
     Dates: start: 20130821

REACTIONS (1)
  - Cerebral vasoconstriction [Unknown]
